FAERS Safety Report 5171336-4 (Version None)
Quarter: 2006Q4

REPORT INFORMATION
  Report Type: 
  Country: None (occurrence: None)
  Receive Date: 20061213
  Receipt Date: 20051101
  Transmission Date: 20070319
  Serious: Yes (Other)
  Sender: FDA-Public Use
  Company Number: US-AMGEN-US156352

PATIENT
  Sex: Female
  Weight: 67.2 kg

DRUGS (2)
  1. ENBREL [Suspect]
     Indication: RHEUMATOID ARTHRITIS
     Route: 065
     Dates: start: 20021201, end: 20050501
  2. METHOTREXATE [Concomitant]
     Route: 065
     Dates: start: 19940101

REACTIONS (1)
  - MULTIPLE SCLEROSIS [None]
